FAERS Safety Report 8251791-3 (Version None)
Quarter: 2012Q1

REPORT INFORMATION
  Report Type: 
  Country: None (occurrence: None)
  Receive Date: 20120321
  Receipt Date: 20100301
  Transmission Date: 20120608
  Serious: Yes (Other)
  Sender: FDA-Public Use
  Company Number: PHEH2010US02823

PATIENT
  Age: 70 Year
  Sex: Female

DRUGS (2)
  1. VALTURNA [Suspect]
     Dosage: 150/160 QD, ORAL
     Route: 048
  2. EXFORGE [Suspect]

REACTIONS (2)
  - DYSPNOEA [None]
  - PHARYNGEAL OEDEMA [None]
